FAERS Safety Report 9031471 (Version 1)
Quarter: 2013Q1

REPORT INFORMATION
  Report Type: Spontaneous
  Country: FR (occurrence: FR)
  Receive Date: 20130124
  Receipt Date: 20130124
  Transmission Date: 20140127
  Serious: Yes (Death, Hospitalization)
  Sender: FDA-Public Use
  Company Number: JP-ASTRAZENECA-2013SE04511

PATIENT
  Age: 82 Year
  Sex: Male

DRUGS (7)
  1. COKENZEN [Suspect]
     Indication: HYPERTENSION
     Dosage: 16/12.5 MG, ONE TABLET, FREQUENCY UNKNOWN
     Route: 048
     Dates: end: 20121111
  2. ELIGARD [Suspect]
     Indication: PROSTATE CANCER
     Dosage: 45 MG, EVERY SIX MONTHS
     Route: 058
  3. AMIODARONE [Suspect]
     Indication: ATRIAL FIBRILLATION
     Route: 048
     Dates: start: 2007, end: 20121114
  4. FLUVASTATIN [Suspect]
     Indication: DYSLIPIDAEMIA
     Route: 048
     Dates: end: 20121111
  5. LASILIX [Suspect]
     Indication: HYPERTENSION
     Route: 048
  6. AMLOR [Suspect]
     Indication: HYPERTENSION
     Route: 065
     Dates: end: 20121111
  7. LEVOTHYROX [Suspect]
     Indication: HYPOTHYROIDISM
     Route: 048

REACTIONS (2)
  - Acute respiratory distress syndrome [Fatal]
  - Lung disorder [Fatal]
